FAERS Safety Report 9727064 (Version 2)
Quarter: 2014Q1

REPORT INFORMATION
  Report Type: Spontaneous
  Country: US (occurrence: US)
  Receive Date: 20131203
  Receipt Date: 20140115
  Transmission Date: 20141002
  Serious: Yes (Death, Other)
  Sender: FDA-Public Use
  Company Number: US-GILEAD-2013-0088768

PATIENT
  Sex: Female

DRUGS (11)
  1. LETAIRIS [Suspect]
     Indication: PULMONARY ARTERIAL HYPERTENSION
     Dosage: 10 MG, QD
     Route: 048
     Dates: start: 20110420, end: 20131107
  2. TRAMADOL [Concomitant]
  3. CYCLOBENZAPRINE [Concomitant]
  4. METHOCARBAMOL [Concomitant]
  5. SYMBICORT [Concomitant]
  6. METOCLOPRAMIDE [Concomitant]
  7. ZETIA [Concomitant]
  8. METOPROLOL [Concomitant]
  9. AVALIDE [Concomitant]
  10. TOVIAZ [Concomitant]
  11. AVAPRO [Concomitant]

REACTIONS (1)
  - Pulmonary arterial hypertension [Fatal]
